FAERS Safety Report 4852747-0 (Version None)
Quarter: 2005Q4

REPORT INFORMATION
  Report Type: 
  Country: None (occurrence: None)
  Receive Date: 20051125
  Receipt Date: 20050408
  Transmission Date: 20060501
  Serious: Yes (Other)
  Sender: FDA-Public Use
  Company Number: 2005057502

PATIENT
  Sex: Male
  Weight: 63.9572 kg

DRUGS (10)
  1. TIKOSYN [Suspect]
     Indication: CARDIAC DISORDER
     Dosage: 500 MCG (250 MCG,BID)
  2. CARVEDILOL [Concomitant]
  3. FUROSEMIDE [Concomitant]
  4. SPIRONOLACTONE [Concomitant]
  5. VALSARTAN [Concomitant]
  6. WARFARIN SODIUM [Concomitant]
  7. DIGOXIN [Concomitant]
  8. FOLIC ACID [Concomitant]
  9. TEMAZEPAM [Concomitant]
  10. ALLOPURINOL [Concomitant]

REACTIONS (2)
  - CARDIAC DISORDER [None]
  - FATIGUE [None]
